FAERS Safety Report 8868919 (Version 1)
Quarter: 2012Q4

REPORT INFORMATION
  Report Type: 
  Country: TR (occurrence: TR)
  Receive Date: 20121027
  Receipt Date: 20121027
  Transmission Date: 20130627
  Serious: Yes (Hospitalization)
  Sender: FDA-Public Use
  Company Number: TR-US-EMD SERONO, INC.-7168708

PATIENT
  Sex: Female
  Weight: 55 kg

DRUGS (7)
  1. REBIF [Suspect]
     Indication: MULTIPLE SCLEROSIS
     Route: 058
     Dates: start: 201005
  2. NOOTROPIL [Suspect]
     Indication: DIZZINESS
     Route: 048
     Dates: start: 201005
  3. SIRDALUD [Suspect]
     Indication: MUSCLE SPASMS
     Route: 048
     Dates: start: 201005
  4. NEURONTIN [Suspect]
     Indication: MUSCLE CONTRACTIONS INVOLUNTARY
     Route: 048
     Dates: start: 201005
  5. FOLIC ACID [Suspect]
     Indication: HYPOVITAMINOSIS
     Route: 048
     Dates: start: 201005
  6. LIORESAL [Suspect]
     Indication: ANAEMIA
     Route: 048
     Dates: start: 201005
  7. OMEPRAZOLE [Suspect]
     Indication: GASTROOESOPHAGEAL REFLUX DISEASE
     Route: 048
     Dates: start: 201005

REACTIONS (2)
  - Gait disturbance [Recovering/Resolving]
  - Muscular weakness [Recovering/Resolving]
